FAERS Safety Report 7285531-1 (Version None)
Quarter: 2011Q1

REPORT INFORMATION
  Report Type: 
  Country: None (occurrence: None)
  Receive Date: 20110125
  Receipt Date: 20110110
  Transmission Date: 20110831
  Serious: Yes (Death)
  Sender: FDA-Public Use
  Company Number: 025585

PATIENT
  Age: 47 Year
  Sex: Female

DRUGS (3)
  1. ACETAMINOPHEN- PROPOXYPHENE HCL TAB [Suspect]
     Dosage: (ORAL)
     Route: 048
  2. ALPRAZOLAM [Suspect]
     Dosage: (ORAL)
     Route: 048
  3. ETHYLENE GLYCOL [Suspect]
     Dosage: (ORAL)
     Route: 048

REACTIONS (3)
  - RESPIRATORY ARREST [None]
  - COMPLETED SUICIDE [None]
  - CARDIAC ARREST [None]
